FAERS Safety Report 23230865 (Version 2)
Quarter: 2023Q4

REPORT INFORMATION
  Report Type: Report from Study
  Country: US (occurrence: US)
  Receive Date: 20231127
  Receipt Date: 20231128
  Transmission Date: 20240110
  Serious: Yes (Other)
  Sender: FDA-Public Use
  Company Number: US-BAYER-2023A167814

PATIENT
  Age: 81 Year
  Sex: Female

DRUGS (4)
  1. ADEMPAS [Suspect]
     Active Substance: RIOCIGUAT
     Indication: Pulmonary arterial hypertension
     Dosage: UNK
  2. ADEMPAS [Suspect]
     Active Substance: RIOCIGUAT
     Indication: Pulmonary arterial hypertension
     Dosage: 2.5 MG, TID
     Route: 048
     Dates: start: 202309
  3. AMBRISENTAN [Concomitant]
     Active Substance: AMBRISENTAN
  4. DIGOXIN [Concomitant]
     Active Substance: DIGOXIN

REACTIONS (5)
  - Syncope [None]
  - Dizziness [None]
  - Peripheral swelling [None]
  - Joint swelling [None]
  - Fatigue [None]
